FAERS Safety Report 9170564 (Version 1)
Quarter: 2013Q1

REPORT INFORMATION
  Report Type: Spontaneous
  Country: US (occurrence: None)
  Receive Date: 20130307
  Receipt Date: 20130307
  Transmission Date: 20140127
  Serious: Yes (Other)
  Sender: FDA-Public Use
  Company Number: 2013MA001352

PATIENT
  Age: 47 Year
  Sex: Female

DRUGS (1)
  1. DEXTROAMPHETAMINE SACCHARATE, AMPHETAMINE ASPARTATE MONOHYDRATE, DEXTROAMPHETAMINE SULFATE AND AMPHE [Suspect]
     Dates: start: 20130212, end: 20130220

REACTIONS (5)
  - Drug ineffective [None]
  - Asthenia [None]
  - Listless [None]
  - Feeling abnormal [None]
  - Drug withdrawal syndrome [None]
